FAERS Safety Report 18149545 (Version 1)
Quarter: 2020Q3

REPORT INFORMATION
  Report Type: Spontaneous
  Country: GB (occurrence: GB)
  Receive Date: 20200814
  Receipt Date: 20200814
  Transmission Date: 20201103
  Serious: Yes (Life-Threatening, Hospitalization)
  Sender: FDA-Public Use
  Company Number: GB-TEVA-2020-GB-1813634

PATIENT
  Age: 75 Year
  Sex: Female
  Weight: 70 kg

DRUGS (6)
  1. SOTALOL. [Suspect]
     Active Substance: SOTALOL
     Indication: SUPRAVENTRICULAR TACHYARRHYTHMIA
     Dosage: 320 MG
     Route: 048
     Dates: start: 20200617, end: 20200619
  2. FUROSEMIDE. [Concomitant]
     Active Substance: FUROSEMIDE
  3. ATORVASTATIN [Concomitant]
     Active Substance: ATORVASTATIN
  4. LINAGLIPTIN [Concomitant]
     Active Substance: LINAGLIPTIN
  5. GLICLAZIDE [Concomitant]
     Active Substance: GLICLAZIDE
  6. WARFARIN [Concomitant]
     Active Substance: WARFARIN

REACTIONS (2)
  - Cardiac arrest [Recovered/Resolved]
  - Ventricular tachycardia [Recovered/Resolved]

NARRATIVE: CASE EVENT DATE: 20200619
